FAERS Safety Report 14599028 (Version 2)
Quarter: 2018Q1

REPORT INFORMATION
  Report Type: Spontaneous
  Country: DE (occurrence: DE)
  Receive Date: 20180305
  Receipt Date: 20180305
  Transmission Date: 20180509
  Serious: Yes (Life-Threatening, Other)
  Sender: FDA-Public Use
  Company Number: DE-CONCORDIA PHARMACEUTICALS INC.-E2B_00010189

PATIENT
  Age: 49 Year
  Sex: Female

DRUGS (3)
  1. PREDNISOLONE. [Suspect]
     Active Substance: PREDNISOLONE
     Indication: MASTOCYTOSIS
     Dosage: ADMINISTERED ONLY ONCE
  2. PREDNISOLONE. [Suspect]
     Active Substance: PREDNISOLONE
     Indication: MAST CELL ACTIVATION SYNDROME
  3. PREDNISOLONE. [Suspect]
     Active Substance: PREDNISOLONE
     Indication: PROPHYLAXIS

REACTIONS (2)
  - Circulatory collapse [Recovering/Resolving]
  - Hypersensitivity [Recovering/Resolving]
